FAERS Safety Report 10098144 (Version 1)
Quarter: 2014Q2

REPORT INFORMATION
  Report Type: Spontaneous
  Country: BR (occurrence: None)
  Receive Date: 20140421
  Receipt Date: 20140421
  Transmission Date: 20141212
  Serious: Yes (Hospitalization, Other)
  Sender: FDA-Public Use
  Company Number: AUR-APL-2014-04706

PATIENT
  Age: 72 Year
  Sex: Female
  Weight: 90 kg

DRUGS (15)
  1. ATENOLOL (ATENOLOL) [Suspect]
     Indication: HYPERTENSION
     Route: 048
     Dates: start: 2004, end: 201312
  2. OMEPRAZOLE (OMEPRAZOLE) [Suspect]
     Indication: GASTRIC DISORDER
     Route: 048
  3. SELOZOK [Suspect]
     Indication: TACHYCARDIA
     Dosage: (25 MG, 1 D)
     Route: 048
  4. ACETYLSALICYLIC ACID (ACETYLSALICYLIC ACID) [Suspect]
     Indication: PRODUCT USED FOR UNKNOWN INDICATION
  5. CLORANA [Suspect]
     Indication: HYPERTENSION
     Dosage: (1 D)
     Route: 048
     Dates: start: 2004
  6. LOSARTAN (LOSARTAN) [Concomitant]
  7. SIMVASTATIN (SIMVASTATIN) [Concomitant]
  8. LEVOTHYROXINE (LEVOTHYROXINE) [Concomitant]
  9. AMITRIPTYLINE(AMITRIPTYLINE) [Concomitant]
  10. IBUPROFEN (IBUPROFEN) [Concomitant]
  11. TENOXICAM (TENOXICAM) [Concomitant]
  12. FERROUS SULPHATE (FERROUS SULFATE) [Concomitant]
  13. FAMOTIDINE (FAMOTIDINE) [Concomitant]
  14. CHONDROITIN SULFATE (CHONDROITIN SULFATE) [Concomitant]
  15. GLUCOSAMINE (GLUCOSAMIDE) [Concomitant]

REACTIONS (14)
  - Gastrointestinal disorder [None]
  - Arrhythmia [None]
  - Haemorrhage [None]
  - Tachycardia [None]
  - Fall [None]
  - Femur fracture [None]
  - Thrombosis [None]
  - Intervertebral disc protrusion [None]
  - Gait disturbance [None]
  - Fatigue [None]
  - Back pain [None]
  - Intervertebral disc protrusion [None]
  - Anaemia [None]
  - Haemoglobin decreased [None]
